FAERS Safety Report 22906926 (Version 3)
Quarter: 2023Q4

REPORT INFORMATION
  Report Type: Spontaneous
  Country: US (occurrence: US)
  Receive Date: 20230905
  Receipt Date: 20231113
  Transmission Date: 20240110
  Serious: Yes (Other)
  Sender: FDA-Public Use
  Company Number: US-PFIZER INC-2019205647

PATIENT
  Age: 59 Year
  Sex: Male

DRUGS (2)
  1. CELONTIN [Suspect]
     Active Substance: METHSUXIMIDE
     Indication: Generalised tonic-clonic seizure
     Dosage: 900 MG, 2X/DAY (TAKE 3 CAPSULES-900 MG 2 TIMES A DAY)
     Route: 048
     Dates: start: 20210305
  2. CELONTIN [Suspect]
     Active Substance: METHSUXIMIDE
     Indication: Petit mal epilepsy
     Dosage: 300 MG, 2X/DAY

REACTIONS (2)
  - Dementia [Unknown]
  - Prescribed overdose [Unknown]
